FAERS Safety Report 20745944 (Version 1)
Quarter: 2022Q2

REPORT INFORMATION
  Report Type: Spontaneous
  Country: US (occurrence: None)
  Receive Date: 20220424
  Receipt Date: 20220424
  Transmission Date: 20220721
  Serious: Yes (Other)
  Sender: FDA-Public Use
  Company Number: None

PATIENT
  Age: 59 Year
  Sex: Female
  Weight: 56.25 kg

DRUGS (1)
  1. ICY HOT [Suspect]
     Active Substance: MENTHOL\METHYL SALICYLATE
     Indication: Back pain
     Dosage: OTHER STRENGTH : ROLL ON;?OTHER FREQUENCY : AS NEEDED;?
     Route: 061
     Dates: start: 20220419, end: 20220420

REACTIONS (2)
  - Application site rash [None]
  - Urticaria [None]

NARRATIVE: CASE EVENT DATE: 20220420
